FAERS Safety Report 16629330 (Version 1)
Quarter: 2019Q3

REPORT INFORMATION
  Report Type: Spontaneous
  Country: FR (occurrence: FR)
  Receive Date: 20190725
  Receipt Date: 20190725
  Transmission Date: 20191004
  Serious: Yes (Other)
  Sender: FDA-Public Use
  Company Number: FR-TEVA-2019-FR-1082703

PATIENT
  Age: 44 Year
  Sex: Female

DRUGS (1)
  1. MODIODAL [Suspect]
     Active Substance: MODAFINIL
     Indication: HYPERSOMNIA
     Route: 048
     Dates: start: 201806, end: 201901

REACTIONS (3)
  - Pericardial effusion [Not Recovered/Not Resolved]
  - Agitation [Recovered/Resolved]
  - Pericarditis [Not Recovered/Not Resolved]

NARRATIVE: CASE EVENT DATE: 201809
